FAERS Safety Report 7954474-X (Version None)
Quarter: 2011Q4

REPORT INFORMATION
  Report Type: 
  Country: None (occurrence: None)
  Receive Date: 20111202
  Receipt Date: 20111129
  Transmission Date: 20120403
  Serious: Yes (Death)
  Sender: FDA-Public Use
  Company Number: US-CELGENEUS-163-20785-11092734

PATIENT
  Sex: Male

DRUGS (2)
  1. THALOMID [Suspect]
     Indication: MANTLE CELL LYMPHOMA
     Dosage: 50 MILLIGRAM
     Route: 048
     Dates: start: 20110801, end: 20110901
  2. RITUXIMAB [Concomitant]
     Indication: MANTLE CELL LYMPHOMA
     Dosage: 375 MICROGRAM/SQ. METER
     Route: 041
     Dates: start: 20110801, end: 20110901

REACTIONS (2)
  - HEPATIC FAILURE [None]
  - CARDIAC ARREST [None]
